FAERS Safety Report 10134049 (Version 1)
Quarter: 2014Q2

REPORT INFORMATION
  Report Type: Spontaneous
  Country: US (occurrence: US)
  Receive Date: 20140428
  Receipt Date: 20140428
  Transmission Date: 20141212
  Serious: No
  Sender: FDA-Public Use
  Company Number: US-SANOFI-AVENTIS-2013SA066734

PATIENT
  Age: 60 Year
  Sex: Male

DRUGS (2)
  1. ALLEGRA [Suspect]
     Indication: HYPERSENSITIVITY
     Route: 048
     Dates: start: 20130615
  2. ALLEGRA [Suspect]
     Indication: SWELLING
     Route: 048
     Dates: start: 20130615

REACTIONS (1)
  - Drug ineffective [Unknown]
